FAERS Safety Report 8313818-X (Version None)
Quarter: 2012Q2

REPORT INFORMATION
  Report Type: 
  Country: None (occurrence: None)
  Receive Date: 20120426
  Receipt Date: 20120417
  Transmission Date: 20120825
  Serious: Yes (Other)
  Sender: FDA-Public Use
  Company Number: US-ASTRAZENECA-2011SE60558

PATIENT
  Age: 51 Year
  Sex: Male

DRUGS (5)
  1. MI-OMEGA NF ETHYL ESTERS [Concomitant]
  2. NEURONTIN [Concomitant]
     Indication: MIGRAINE PROPHYLAXIS
  3. ZOMIG [Suspect]
     Indication: MIGRAINE
     Route: 048
  4. VITAMIN D [Concomitant]
  5. AMITRIPTYLINE HCL [Concomitant]
     Indication: MIGRAINE PROPHYLAXIS

REACTIONS (28)
  - HAEMORRHOIDAL HAEMORRHAGE [None]
  - PROSTATIC SPECIFIC ANTIGEN INCREASED [None]
  - DEPRESSION [None]
  - INTENTIONAL DRUG MISUSE [None]
  - ARTHRALGIA [None]
  - HYPOAESTHESIA [None]
  - MIGRAINE [None]
  - URINE FLOW DECREASED [None]
  - SENSORY DISTURBANCE [None]
  - FEELING ABNORMAL [None]
  - VISUAL IMPAIRMENT [None]
  - LYMPHADENOPATHY [None]
  - VITAMIN D DEFICIENCY [None]
  - GASTRITIS [None]
  - MALAISE [None]
  - NOCTURIA [None]
  - PSORIASIS [None]
  - HAEMORRHOIDS [None]
  - PAIN [None]
  - HYPERCHOLESTEROLAEMIA [None]
  - PHONOPHOBIA [None]
  - MYALGIA [None]
  - GASTROOESOPHAGEAL REFLUX DISEASE [None]
  - TOBACCO ABUSE [None]
  - EYE DISORDER [None]
  - CATARACT [None]
  - LICHEN PLANUS [None]
  - HEADACHE [None]
